FAERS Safety Report 6366101-6 (Version None)
Quarter: 2009Q3

REPORT INFORMATION
  Report Type: 
  Country: None (occurrence: None)
  Receive Date: 20090920
  Receipt Date: 20090817
  Transmission Date: 20100115
  Serious: No
  Sender: FDA-Public Use
  Company Number: US-BAUSCH-2009BL004149

PATIENT
  Age: 72 Year
  Sex: Male

DRUGS (2)
  1. BESIVANCE (BESIFLOXACIN OPHTHALMIC SUSPENSION) 0.6% [Suspect]
     Indication: CONJUNCTIVITIS BACTERIAL
     Route: 047
     Dates: start: 20090814, end: 20090816
  2. METFORMIN HCL [Concomitant]
     Indication: DIABETES MELLITUS

REACTIONS (1)
  - HYPERSENSITIVITY [None]
